FAERS Safety Report 18511141 (Version 1)
Quarter: 2020Q4

REPORT INFORMATION
  Report Type: Spontaneous
  Country: JP (occurrence: JP)
  Receive Date: 20201117
  Receipt Date: 20201117
  Transmission Date: 20210114
  Serious: Yes (Hospitalization, Other)
  Sender: FDA-Public Use
  Company Number: JP-STRIDES ARCOLAB LIMITED-2020SP013758

PATIENT
  Age: 71 Year
  Sex: Male

DRUGS (2)
  1. PREDNISOLONE. [Suspect]
     Active Substance: PREDNISOLONE
     Dosage: 20MG/DAY
     Route: 042
  2. PREDNISOLONE. [Suspect]
     Active Substance: PREDNISOLONE
     Indication: AUTOIMMUNE PANCREATITIS
     Dosage: 15MG/DAY
     Route: 048

REACTIONS (7)
  - Gastrointestinal ulcer haemorrhage [Recovered/Resolved]
  - COVID-19 pneumonia [Unknown]
  - Hypovolaemic shock [Unknown]
  - Haematochezia [Unknown]
  - Coagulopathy [Unknown]
  - Pyrexia [Unknown]
  - Cytomegalovirus infection [Unknown]
